FAERS Safety Report 11571741 (Version 2)
Quarter: 2016Q4

REPORT INFORMATION
  Report Type: Spontaneous
  Country: US (occurrence: US)
  Receive Date: 20150929
  Receipt Date: 20161007
  Transmission Date: 20170206
  Serious: No
  Sender: FDA-Public Use
  Company Number: US-SA-2015SA117023

PATIENT
  Age: 49 Year
  Sex: Female

DRUGS (8)
  1. TRAMADOL HYDROCHLORIDE. [Concomitant]
     Active Substance: TRAMADOL HYDROCHLORIDE
  2. VITAMIN D [Concomitant]
     Active Substance: CHOLECALCIFEROL
  3. NUVIGIL [Concomitant]
     Active Substance: ARMODAFINIL
  4. NORCO [Concomitant]
     Active Substance: ACETAMINOPHEN\HYDROCODONE BITARTRATE
  5. AUBAGIO [Suspect]
     Active Substance: TERIFLUNOMIDE
     Indication: MULTIPLE SCLEROSIS
     Route: 048
  6. VITAMIN B12 [Concomitant]
     Active Substance: CYANOCOBALAMIN
  7. SERTRALINE HYDROCHLORIDE. [Concomitant]
     Active Substance: SERTRALINE HYDROCHLORIDE
  8. AUBAGIO [Suspect]
     Active Substance: TERIFLUNOMIDE
     Indication: MULTIPLE SCLEROSIS
     Route: 048

REACTIONS (6)
  - Dry skin [Unknown]
  - Balance disorder [Unknown]
  - Hypoaesthesia [Unknown]
  - Condition aggravated [Unknown]
  - Nausea [Unknown]
  - Drug dose omission [Unknown]
